FAERS Safety Report 9092456 (Version 1)
Quarter: 2013Q1

REPORT INFORMATION
  Report Type: Report from Study
  Country: US (occurrence: US)
  Receive Date: 20130218
  Receipt Date: 20130218
  Transmission Date: 20140127
  Serious: No
  Sender: FDA-Public Use
  Company Number: US-ABBOTT-12P-163-0997763-00

PATIENT
  Sex: Male
  Weight: 115.77 kg

DRUGS (4)
  1. SIMCOR 500/20 [Suspect]
     Indication: BLOOD CHOLESTEROL
     Dosage: 500/20 MG 1 TABLET DAILY
     Route: 048
     Dates: start: 2010
  2. SIMCOR 500/20 [Suspect]
     Indication: HIGH DENSITY LIPOPROTEIN
  3. ZOLOFT [Concomitant]
     Indication: PRODUCT USED FOR UNKNOWN INDICATION
  4. ASPIRIN [Concomitant]
     Indication: PRODUCT USED FOR UNKNOWN INDICATION
     Dosage: 81 MG DAILY
     Route: 048

REACTIONS (2)
  - Flushing [Not Recovered/Not Resolved]
  - Paraesthesia [Not Recovered/Not Resolved]
